FAERS Safety Report 8625943-4 (Version None)
Quarter: 2012Q3

REPORT INFORMATION
  Report Type: 
  Country: None (occurrence: None)
  Receive Date: 20120827
  Receipt Date: 20120824
  Transmission Date: 20120928
  Serious: Yes (Hospitalization, Other)
  Sender: FDA-Public Use
  Company Number: JP-ABBOTT-11P-087-0840827-00

PATIENT
  Sex: Female
  Weight: 49.3 kg

DRUGS (10)
  1. HUMIRA [Suspect]
     Indication: CROHN'S DISEASE
     Route: 058
     Dates: start: 20101130, end: 20101130
  2. MESALAMINE [Concomitant]
     Indication: CROHN'S DISEASE
     Dosage: DAILY
     Route: 048
  3. DIMETICONE [Concomitant]
     Indication: PRODUCT USED FOR UNKNOWN INDICATION
     Route: 048
  4. HUMIRA [Suspect]
     Dates: start: 20101228, end: 20110308
  5. PYRIDOXAL PHOSPHATE HYDRATE [Concomitant]
     Indication: VITAMIN SUPPLEMENTATION
     Route: 048
  6. REBAMIPIDE [Concomitant]
     Indication: PRODUCT USED FOR UNKNOWN INDICATION
     Route: 048
  7. HUMIRA [Suspect]
     Dates: start: 20101214, end: 20101214
  8. MAGNESIUM OXIDE [Concomitant]
     Indication: PRODUCT USED FOR UNKNOWN INDICATION
     Route: 048
  9. LOXOPROFEN SODIUM HYDRATE [Concomitant]
     Indication: PAIN MANAGEMENT
     Route: 048
  10. FLAVIN ADENINE DINUCLEOTIDE [Concomitant]
     Indication: VITAMIN SUPPLEMENTATION
     Route: 048

REACTIONS (13)
  - SUBILEUS [None]
  - GASTROINTESTINAL ANASTOMOTIC LEAK [None]
  - FISTULA DISCHARGE [None]
  - PERITONITIS [None]
  - SMALL INTESTINAL STENOSIS [None]
  - PYREXIA [None]
  - PURULENT DISCHARGE [None]
  - FLUID RETENTION [None]
  - GASTROINTESTINAL OEDEMA [None]
  - ABDOMINAL PAIN [None]
  - ABSCESS [None]
  - POSTOPERATIVE ILEUS [None]
  - INTESTINAL MUCOSAL HYPERTROPHY [None]
